FAERS Safety Report 17567136 (Version 3)
Quarter: 2020Q4

REPORT INFORMATION
  Report Type: Report from Study
  Country: US (occurrence: US)
  Receive Date: 20200320
  Receipt Date: 20201103
  Transmission Date: 20210113
  Serious: Yes (Death, Life-Threatening, Other)
  Sender: FDA-Public Use
  Company Number: NVSC2020US078285

PATIENT
  Age: 9 Year
  Sex: Male

DRUGS (3)
  1. CYCLOPHOSPHAMIDE. [Concomitant]
     Active Substance: CYCLOPHOSPHAMIDE
     Indication: CHEMOTHERAPY
     Dosage: UNK
     Route: 065
  2. FLUDARABINE [Concomitant]
     Active Substance: FLUDARABINE PHOSPHATE
     Indication: CHEMOTHERAPY
     Dosage: UNK
     Route: 065
  3. KYMRIAH [Suspect]
     Active Substance: TISAGENLECLEUCEL
     Indication: B-CELL TYPE ACUTE LEUKAEMIA
     Dosage: 2.5 X 10E8 CAR POSITIVE VIABLE T-CELLS
     Route: 065
     Dates: start: 20190502

REACTIONS (27)
  - Nephropathy toxic [Unknown]
  - Cytokine release syndrome [Recovered/Resolved]
  - Cytopenia [Recovered/Resolved]
  - Hypogammaglobulinaemia [Recovered/Resolved]
  - Musculoskeletal toxicity [Unknown]
  - Pyrexia [Recovered/Resolved]
  - Cerebral haemorrhage [Recovered/Resolved]
  - Depressed level of consciousness [Recovered/Resolved]
  - Acute lymphocytic leukaemia recurrent [Fatal]
  - Neurotoxicity [Recovered/Resolved]
  - Aphasia [Recovered/Resolved]
  - Motor dysfunction [Unknown]
  - Hepatotoxicity [Unknown]
  - Leukoencephalopathy [Recovered/Resolved]
  - Neutropenia [Unknown]
  - Pulmonary toxicity [Unknown]
  - Hypotension [Unknown]
  - Hypoxia [Unknown]
  - Staphylococcal infection [Unknown]
  - Cardiotoxicity [Unknown]
  - Hemiparesis [Recovered/Resolved]
  - Tremor [Recovered/Resolved]
  - Status epilepticus [Recovered/Resolved]
  - Paraparesis [Unknown]
  - Brain oedema [Recovered/Resolved]
  - Disseminated intravascular coagulation [Unknown]
  - Thrombocytopenia [Unknown]
